FAERS Safety Report 5282827-X (Version None)
Quarter: 2007Q1

REPORT INFORMATION
  Report Type: 
  Country: None (occurrence: None)
  Receive Date: 20070329
  Receipt Date: 20070329
  Transmission Date: 20070707
  Serious: Yes (Death, Hospitalization)
  Sender: FDA-Public Use
  Company Number: None

PATIENT
  Age: 66 Year
  Sex: Male

DRUGS (25)
  1. CEFEPIME [Suspect]
     Indication: INFECTION
     Dosage: 2 GRAMS Q 12 HOURS IV DRIP
     Route: 041
     Dates: start: 20061214, end: 20070102
  2. ACETAMINOPHEN [Concomitant]
  3. ALBUTEROL [Concomitant]
  4. CASPOFUNGIN [Concomitant]
  5. CASPOFUNGIN ACETATE [Concomitant]
  6. SODIUM CHLORIDE [Concomitant]
  7. CYANOCOBALAMIN [Concomitant]
  8. VITAMIN B-12 [Concomitant]
  9. THIAMINE [Concomitant]
  10. FILGRASTIM [Concomitant]
  11. GLUTAMINE POWDER [Concomitant]
  12. HYDROCORTISONE SODIUM SUCCINATE [Concomitant]
  13. REGULAR INSULIN [Concomitant]
  14. IPRATROPIUM BR [Concomitant]
  15. METHYLCELLULOSE [Concomitant]
  16. MILRINONE [Concomitant]
  17. MILRINONE LACTATE [Concomitant]
  18. NOREPINEPHRINE BITARTRATE [Concomitant]
  19. DEXTROSE [Concomitant]
  20. POTASSIUM CHLORIDE [Concomitant]
  21. SODIUM CHLORIDE [Concomitant]
  22. POTASSIUM ACETATE [Concomitant]
  23. X [Concomitant]
  24. X [Concomitant]
  25. X [Concomitant]

REACTIONS (3)
  - RESPIRATORY DISTRESS [None]
  - SKIN EXFOLIATION [None]
  - STEVENS-JOHNSON SYNDROME [None]
